FAERS Safety Report 7397165-9 (Version None)
Quarter: 2011Q2

REPORT INFORMATION
  Report Type: 
  Country: None (occurrence: None)
  Receive Date: 20110406
  Receipt Date: 20110331
  Transmission Date: 20111010
  Serious: Yes (Death)
  Sender: FDA-Public Use
  Company Number: B0710771A

PATIENT
  Sex: Female
  Weight: 33 kg

DRUGS (20)
  1. ALKERAN [Suspect]
     Dosage: 35MGM2 PER DAY
     Route: 042
     Dates: start: 20020703, end: 20020704
  2. GRAN [Concomitant]
     Dates: start: 20020715, end: 20020725
  3. ALEVIATIN [Concomitant]
     Dosage: 50ML PER DAY
     Route: 042
     Dates: end: 20020725
  4. BAKTAR [Concomitant]
     Dosage: 3IUAX PER DAY
     Route: 048
     Dates: end: 20020627
  5. FUROSEMIDE [Concomitant]
     Dosage: 10MG PER DAY
     Dates: end: 20020725
  6. GASTER [Concomitant]
     Dosage: 10MG PER DAY
     Route: 042
     Dates: end: 20020722
  7. BIOFERMIN R [Concomitant]
     Dosage: 3G PER DAY
     Route: 048
     Dates: end: 20020717
  8. CYCLOSPORINE [Concomitant]
     Indication: IMMUNOSUPPRESSION
     Dosage: 100MG PER DAY
     Route: 065
     Dates: start: 20020707
  9. GASMOTIN [Concomitant]
     Dosage: 7.5MG PER DAY
     Route: 048
     Dates: end: 20020725
  10. BACCIDAL [Concomitant]
     Dosage: 100MG PER DAY
     Route: 048
     Dates: end: 20020726
  11. METHOTREXATE [Concomitant]
     Indication: IMMUNOSUPPRESSION
     Dosage: 10MGM2 PER DAY
     Route: 065
     Dates: start: 20020706, end: 20020711
  12. INTRALIPID 10% [Concomitant]
     Dosage: 50ML PER DAY
     Route: 042
     Dates: end: 20020624
  13. KYTRIL [Concomitant]
     Dosage: 1.5ML PER DAY
     Dates: start: 20020705, end: 20020705
  14. ALLOID G [Concomitant]
     Dosage: 30ML PER DAY
     Route: 048
     Dates: end: 20020723
  15. BISOLVON [Concomitant]
     Dosage: 12MG PER DAY
     Route: 048
     Dates: end: 20020725
  16. ALKERAN [Suspect]
     Indication: STEM CELL TRANSPLANT
     Dosage: 35MGM2 PER DAY
     Route: 042
     Dates: start: 20020626, end: 20020627
  17. DIFLUCAN [Concomitant]
     Dosage: 100MG PER DAY
     Route: 042
     Dates: end: 20020706
  18. ELCITONIN [Concomitant]
     Dosage: 20ML PER DAY
     Route: 030
     Dates: end: 20020725
  19. FLUDARA [Suspect]
     Indication: STEM CELL TRANSPLANT
     Dosage: 25MGM2 PER DAY
     Route: 042
     Dates: start: 20020628, end: 20020702
  20. ZOVIRAX [Concomitant]
     Dosage: 150MG PER DAY
     Route: 042
     Dates: start: 20020702, end: 20020725

REACTIONS (7)
  - LIVER DISORDER [None]
  - CARDIAC FAILURE ACUTE [None]
  - RENAL FAILURE ACUTE [None]
  - SEPSIS [None]
  - C-REACTIVE PROTEIN INCREASED [None]
  - PYREXIA [None]
  - BLOOD CREATININE INCREASED [None]
